FAERS Safety Report 9451014 (Version 1)
Quarter: 2013Q3

REPORT INFORMATION
  Report Type: Spontaneous
  Country: GB (occurrence: None)
  Receive Date: 20130807
  Receipt Date: 20130807
  Transmission Date: 20140515
  Serious: Yes (Life-Threatening, Hospitalization, Disabling, Other)
  Sender: FDA-Public Use
  Company Number: AUR-APL-2013-06370

PATIENT
  Sex: Male
  Weight: 112.4 kg

DRUGS (5)
  1. CITALOPRAM (CITALOPRAM) [Suspect]
     Indication: PRODUCT USED FOR UNKNOWN INDICATION
     Route: 048
     Dates: start: 20100508, end: 20100508
  2. NITRAZEPAM (NITRAZEPAM) [Suspect]
     Indication: INSOMNIA
     Route: 048
     Dates: start: 20080708, end: 20080708
  3. OLANZAPINE (OLANZAPINE) [Suspect]
     Indication: PRODUCT USED FOR UNKNOWN INDICATION
     Route: 048
     Dates: start: 20020304, end: 20090110
  4. ZOLPIDEM (ZOLPIDEM) [Suspect]
     Indication: INSOMNIA
     Route: 048
     Dates: start: 20061004, end: 20070504
  5. MORPHINE [Concomitant]

REACTIONS (3)
  - Urinary incontinence [None]
  - Therapy cessation [None]
  - Diabetes mellitus [None]
